FAERS Safety Report 8001465-9 (Version None)
Quarter: 2011Q4

REPORT INFORMATION
  Report Type: 
  Country: None (occurrence: None)
  Receive Date: 20111222
  Receipt Date: 20111212
  Transmission Date: 20120403
  Serious: Yes (Other)
  Sender: FDA-Public Use
  Company Number: US-JNJFOC-20111007301

PATIENT
  Sex: Male
  Weight: 96.16 kg

DRUGS (2)
  1. REMICADE [Suspect]
     Indication: PSORIASIS
     Route: 042
     Dates: start: 20110101
  2. REMICADE [Suspect]
     Route: 042
     Dates: start: 20110324, end: 20111013

REACTIONS (3)
  - CONTUSION [None]
  - PLATELET COUNT DECREASED [None]
  - LUPUS-LIKE SYNDROME [None]
